FAERS Safety Report 8066204-4 (Version None)
Quarter: 2012Q1

REPORT INFORMATION
  Report Type: 
  Country: None (occurrence: None)
  Receive Date: 20120124
  Receipt Date: 20120120
  Transmission Date: 20120608
  Serious: Yes (Death, Life-Threatening)
  Sender: FDA-Public Use
  Company Number: PT-B.I. PHARMACEUTICALS,INC./RIDGEFIELD-2012-EU-00098PO

PATIENT
  Sex: Female
  Weight: 45 kg

DRUGS (2)
  1. PRADAXA [Suspect]
     Indication: THROMBOSIS PROPHYLAXIS
     Dosage: 150 MG
     Route: 048
     Dates: start: 20111222, end: 20120101
  2. NAPROXEN [Suspect]
     Indication: ANTIINFLAMMATORY THERAPY
     Dosage: 500 MG
     Route: 048
     Dates: start: 20111222, end: 20120101

REACTIONS (3)
  - GASTROINTESTINAL HAEMORRHAGE [None]
  - DRUG INTERACTION [None]
  - MELAENA [None]
